FAERS Safety Report 10406197 (Version 2)
Quarter: 2015Q1

REPORT INFORMATION
  Report Type: Other
  Country: IT (occurrence: IT)
  Receive Date: 20140825
  Receipt Date: 20150129
  Transmission Date: 20150720
  Serious: Yes (Hospitalization)
  Sender: FDA-Public Use
  Company Number: IT-MYLAN-2014M1001875

PATIENT

DRUGS (5)
  1. ANTRA                              /00661201/ [Concomitant]
     Active Substance: OMEPRAZOLE
     Indication: PRODUCT USED FOR UNKNOWN INDICATION
  2. TICLOPIDINE [Suspect]
     Active Substance: TICLOPIDINE
     Indication: PRODUCT USED FOR UNKNOWN INDICATION
     Dosage: 500 MG DAILY
     Route: 048
     Dates: start: 20100601, end: 20140807
  3. BISOPROLOL HEMIFUMARATE [Concomitant]
     Active Substance: BISOPROLOL FUMARATE
     Indication: PRODUCT USED FOR UNKNOWN INDICATION
  4. FUROSEMIDE. [Concomitant]
     Active Substance: FUROSEMIDE
     Indication: PRODUCT USED FOR UNKNOWN INDICATION
  5. SPIRONOLACTONE. [Concomitant]
     Active Substance: SPIRONOLACTONE
     Indication: PRODUCT USED FOR UNKNOWN INDICATION

REACTIONS (2)
  - Oesophagitis [Recovering/Resolving]
  - Anaemia [Recovering/Resolving]

NARRATIVE: CASE EVENT DATE: 20140702
